FAERS Safety Report 24327343 (Version 2)
Quarter: 2024Q4

REPORT INFORMATION
  Report Type: Spontaneous
  Country: FR (occurrence: FR)
  Receive Date: 20240917
  Receipt Date: 20241030
  Transmission Date: 20250115
  Serious: Yes (Other)
  Sender: ALEXION PHARMACEUTICALS
  Company Number: 2024A208636

PATIENT
  Age: 61 Year

DRUGS (2)
  1. SAPHNELO [Suspect]
     Active Substance: ANIFROLUMAB-FNIA
     Indication: Systemic lupus erythematosus
     Dosage: 1 MILLIGRAM PER MILLILITRE, UNK, FREQUENCY: Q4WK
  2. SAPHNELO [Suspect]
     Active Substance: ANIFROLUMAB-FNIA
     Dosage: 1 MILLIGRAM PER MILLILITRE, UNK, FREQUENCY: Q4WK

REACTIONS (2)
  - Bone fistula [Unknown]
  - Osteitis [Unknown]
